FAERS Safety Report 7986573-0 (Version None)
Quarter: 2011Q4

REPORT INFORMATION
  Report Type: 
  Country: None (occurrence: None)
  Receive Date: 20111216
  Receipt Date: 20110906
  Transmission Date: 20120403
  Serious: No
  Sender: FDA-Public Use
  Company Number: US-BRISTOL-MYERS SQUIBB COMPANY-15925662

PATIENT
  Age: 19 Year
  Sex: Female
  Weight: 91 kg

DRUGS (4)
  1. DEXEDRINE [Concomitant]
     Indication: ATTENTION DEFICIT/HYPERACTIVITY DISORDER
     Dates: end: 20110601
  2. WELLBUTRIN [Suspect]
  3. ABILIFY [Suspect]
     Indication: BIPOLAR DISORDER
     Dosage: ON 23MAY2011 INCREASED TO 15MG
     Route: 048
     Dates: start: 20100901
  4. LEXAPRO [Suspect]

REACTIONS (1)
  - BLOOD THYROID STIMULATING HORMONE DECREASED [None]
